FAERS Safety Report 17765126 (Version 1)
Quarter: 2020Q2

REPORT INFORMATION
  Report Type: Spontaneous
  Country: CN (occurrence: CN)
  Receive Date: 20200511
  Receipt Date: 20200511
  Transmission Date: 20200714
  Serious: Yes (Other)
  Sender: FDA-Public Use
  Company Number: CN-BAXTER-2020BAX009791

PATIENT
  Age: 46 Year
  Sex: Female
  Weight: 79 kg

DRUGS (8)
  1. 0.9% SODIUM CHLORIDE INJECTION [Suspect]
     Active Substance: SODIUM CHLORIDE
     Dosage: DAY 1, 0.9% SODIUM CHLORIDE + AIDASHENG (170 MG)
     Route: 041
     Dates: start: 20200410, end: 20200410
  2. ENDOXAN [Suspect]
     Active Substance: CYCLOPHOSPHAMIDE
     Dosage: DAY 1,ENDOXAN + 0.9% SODIUM CHLORIDE 100 ML, DOSE RE-INTRODUCED
     Route: 041
     Dates: start: 20200426, end: 20200426
  3. 0.9% SODIUM CHLORIDE INJECTION [Suspect]
     Active Substance: SODIUM CHLORIDE
     Indication: MEDICATION DILUTION
     Dosage: DAY 1, 0.9% SODIUM CHLORIDE + ENDOXAN (1100 MG)
     Route: 041
     Dates: start: 20200410, end: 20200410
  4. 0.9% SODIUM CHLORIDE INJECTION [Suspect]
     Active Substance: SODIUM CHLORIDE
     Dosage: DAY 1, 0.9% SODIUM CHLORIDE + ENDOXAN (1100 MG),DOSE RE-INTRODUCED
     Route: 041
     Dates: start: 20200426, end: 20200426
  5. AIDASHENG [Suspect]
     Active Substance: EPIRUBICIN HYDROCHLORIDE
     Indication: BREAST CANCER
     Dosage: DAY 1, AIDASHENG + 0.9% SODIUM CHLORIDE (250 ML)
     Route: 041
     Dates: start: 20200410, end: 20200410
  6. AIDASHENG [Suspect]
     Active Substance: EPIRUBICIN HYDROCHLORIDE
     Dosage: DAY 1, AIDASHENG + 0.9% SODIUM CHLORIDE (250 ML), DOSE RE-INTRODUCED.
     Route: 041
     Dates: start: 20200426, end: 20200426
  7. 0.9% SODIUM CHLORIDE INJECTION [Suspect]
     Active Substance: SODIUM CHLORIDE
     Dosage: DAY 1, 0.9% SODIUM CHLORIDE + AIDASHENG (170 MG), DOSE RE-INTRODUCED
     Route: 041
     Dates: start: 20200426, end: 20200426
  8. ENDOXAN [Suspect]
     Active Substance: CYCLOPHOSPHAMIDE
     Indication: BREAST CANCER
     Dosage: DAY1, ENDOXAN + 0.9% SODIUM CHLORIDE (100 ML)
     Route: 041
     Dates: start: 20200410, end: 20200410

REACTIONS (1)
  - Platelet count decreased [Recovered/Resolved]

NARRATIVE: CASE EVENT DATE: 20200424
